FAERS Safety Report 15494203 (Version 1)
Quarter: 2018Q4

REPORT INFORMATION
  Report Type: Spontaneous
  Country: ZA (occurrence: ZA)
  Receive Date: 20181012
  Receipt Date: 20181012
  Transmission Date: 20190205
  Serious: Yes (Other)
  Sender: FDA-Public Use
  Company Number: ZA-PFIZER INC-2018408189

PATIENT
  Age: 62 Year
  Sex: Male

DRUGS (9)
  1. ADCO MIRTERON [Suspect]
     Active Substance: MIRTAZAPINE
     Dosage: 15 MG, UNK
  2. ASPEN TRAZODONE [Suspect]
     Active Substance: TRAZODONE HYDROCHLORIDE
     Dosage: 50 MG, UNK
  3. TOPZOLE [Suspect]
     Active Substance: PANTOPRAZOLE SODIUM
     Dosage: 40 MG, UNK
  4. DORMONOCT [Suspect]
     Active Substance: LOPRAZOLAM
     Dosage: 2 MG, UNK
  5. RIVOTRIL [Suspect]
     Active Substance: CLONAZEPAM
     Dosage: 0.5 MG, UNK
  6. BILOCOR [Suspect]
     Active Substance: BISOPROLOL FUMARATE
     Dosage: 5 MG, UNK
  7. AVIGRA [Suspect]
     Active Substance: SILDENAFIL CITRATE
     Dosage: 100 MG, UNK
  8. ZYTOMIL [Suspect]
     Active Substance: ESCITALOPRAM OXALATE
     Dosage: 20 MG, UNK
  9. ECOTRIN [Suspect]
     Active Substance: ASPIRIN
     Dosage: 81 MG, UNK

REACTIONS (2)
  - Intestinal obstruction [Unknown]
  - Colon cancer [Unknown]
